FAERS Safety Report 6935998-0 (Version None)
Quarter: 2010Q3

REPORT INFORMATION
  Report Type: 
  Country: None (occurrence: None)
  Receive Date: 20100823
  Receipt Date: 20100818
  Transmission Date: 20110219
  Serious: Yes (Hospitalization, Other)
  Sender: FDA-Public Use
  Company Number: JP-BRISTOL-MYERS SQUIBB COMPANY-15228430

PATIENT
  Age: 74 Year
  Sex: Male

DRUGS (1)
  1. MAXIPIME [Suspect]
     Indication: FEBRILE NEUTROPENIA
     Route: 041

REACTIONS (3)
  - DISSEMINATED INTRAVASCULAR COAGULATION [None]
  - INTESTINAL OBSTRUCTION [None]
  - PSEUDOMEMBRANOUS COLITIS [None]
